FAERS Safety Report 23244207 (Version 1)
Quarter: 2023Q4

REPORT INFORMATION
  Report Type: Spontaneous
  Country: US (occurrence: US)
  Receive Date: 20231130
  Receipt Date: 20231130
  Transmission Date: 20240110
  Serious: No
  Sender: FDA-Public Use
  Company Number: US-STRIDES ARCOLAB LIMITED-2023SP015768

PATIENT
  Age: 28 Year
  Sex: Female

DRUGS (4)
  1. PREDNISOLONE [Suspect]
     Active Substance: PREDNISOLONE
     Indication: Eosinophilic pneumonia acute
     Dosage: UNK,ON THE DAY 3 WITH A CONTINUATION OF PREDNISONE TAPER DOSE
     Route: 065
  2. CEFDINIR [Suspect]
     Active Substance: CEFDINIR
     Indication: Pneumonia haemophilus
     Dosage: UNK
     Route: 065
  3. CEFDINIR [Suspect]
     Active Substance: CEFDINIR
     Indication: Influenza
  4. METHYLPREDNISOLONE [Suspect]
     Active Substance: METHYLPREDNISOLONE
     Indication: Eosinophilic pneumonia acute
     Dosage: UNK
     Route: 042

REACTIONS (1)
  - Maternal exposure during pregnancy [Unknown]
